FAERS Safety Report 15997339 (Version 2)
Quarter: 2019Q4

REPORT INFORMATION
  Report Type: Spontaneous
  Country: US (occurrence: US)
  Receive Date: 20190222
  Receipt Date: 20191007
  Transmission Date: 20200122
  Serious: Yes (Death, Other)
  Sender: FDA-Public Use
  Company Number: US-ASTRAZENECA-2019SE26691

PATIENT
  Age: 63 Year
  Sex: Female
  Weight: 31.3 kg

DRUGS (14)
  1. PRILOSEC OTC [Suspect]
     Active Substance: OMEPRAZOLE MAGNESIUM
     Route: 048
  2. DEXILANT [Suspect]
     Active Substance: DEXLANSOPRAZOLE
     Route: 065
  3. DIGOXIN. [Concomitant]
     Active Substance: DIGOXIN
  4. PREMARIN [Concomitant]
     Active Substance: ESTROGENS, CONJUGATED
  5. ASPIRIN. [Concomitant]
     Active Substance: ASPIRIN
  6. NEXIUM [Suspect]
     Active Substance: ESOMEPRAZOLE MAGNESIUM
     Route: 048
  7. PRILOSEC [Suspect]
     Active Substance: OMEPRAZOLE MAGNESIUM
     Route: 048
  8. PREVACID [Suspect]
     Active Substance: LANSOPRAZOLE
     Indication: GASTROOESOPHAGEAL REFLUX DISEASE
     Dosage: 15 MG TWICE A DAY
     Route: 065
  9. FOSINOPRIL [Concomitant]
     Active Substance: FOSINOPRIL
  10. REGLAN [Concomitant]
     Active Substance: METOCLOPRAMIDE HYDROCHLORIDE
  11. PREVACID 24 HR [Suspect]
     Active Substance: LANSOPRAZOLE
     Route: 065
  12. PROTONIX [Suspect]
     Active Substance: PANTOPRAZOLE SODIUM
     Route: 065
  13. FURSEMIDE [Concomitant]
     Active Substance: FUROSEMIDE
  14. NEXIUM 24HR [Suspect]
     Active Substance: ESOMEPRAZOLE MAGNESIUM
     Route: 048

REACTIONS (4)
  - Renal failure [Not Recovered/Not Resolved]
  - Rebound acid hypersecretion [Unknown]
  - Renal injury [Unknown]
  - Chronic kidney disease [Unknown]

NARRATIVE: CASE EVENT DATE: 2015
